FAERS Safety Report 6299804-2 (Version None)
Quarter: 2009Q3

REPORT INFORMATION
  Report Type: 
  Country: None (occurrence: None)
  Receive Date: 20090806
  Receipt Date: 20090724
  Transmission Date: 20100115
  Serious: No
  Sender: FDA-Public Use
  Company Number: CH-BRISTOL-MYERS SQUIBB COMPANY-14679047

PATIENT
  Age: 67 Year
  Sex: Male

DRUGS (5)
  1. ERBITUX [Suspect]
     Indication: COLON CANCER METASTATIC
     Dosage: TAKEN 32 INFUSIONS
     Route: 042
     Dates: start: 20081014
  2. AVASTIN [Concomitant]
     Indication: COLON CANCER METASTATIC
  3. LEUCOVORIN CALCIUM [Concomitant]
     Indication: COLON CANCER METASTATIC
  4. FLUOROURACIL [Concomitant]
     Indication: COLON CANCER METASTATIC
  5. INSULIN [Concomitant]

REACTIONS (1)
  - FOLLICULITIS [None]
